FAERS Safety Report 9934950 (Version 3)
Quarter: 2015Q1

REPORT INFORMATION
  Report Type: Spontaneous
  Country: US (occurrence: US)
  Receive Date: 20140228
  Receipt Date: 20150116
  Transmission Date: 20150721
  Serious: Yes (Death, Life-Threatening, Hospitalization, Other)
  Sender: FDA-Public Use
  Company Number: US-MERCK-1402USA013690

PATIENT
  Sex: Female
  Weight: 106.58 kg

DRUGS (3)
  1. JANUVIA [Suspect]
     Active Substance: SITAGLIPTIN PHOSPHATE
     Dosage: 100 MG, QD
     Route: 048
     Dates: start: 20110627, end: 20120710
  2. JANUMET [Suspect]
     Active Substance: METFORMIN HYDROCHLORIDE\SITAGLIPTIN PHOSPHATE
     Indication: TYPE 2 DIABETES MELLITUS
     Dosage: 50 MG/1000 MG, QD
     Route: 048
     Dates: start: 20080614, end: 20111121
  3. JANUVIA [Suspect]
     Active Substance: SITAGLIPTIN PHOSPHATE
     Indication: TYPE 2 DIABETES MELLITUS
     Dosage: 50 MG, QD
     Route: 048
     Dates: start: 20081219, end: 20100405

REACTIONS (49)
  - Lung neoplasm malignant [Unknown]
  - Hypoxia [Recovering/Resolving]
  - Blood magnesium decreased [Recovering/Resolving]
  - Cardiomyopathy [Recovering/Resolving]
  - Gastrointestinal arteriovenous malformation [Unknown]
  - Hypokalaemia [Unknown]
  - Pneumonia [Unknown]
  - Arteriosclerosis coronary artery [Unknown]
  - Medical device implantation [Unknown]
  - Hypertension [Unknown]
  - Drug intolerance [Unknown]
  - Pancreatic carcinoma [Fatal]
  - Hepatic cancer [Unknown]
  - Lower gastrointestinal haemorrhage [Recovering/Resolving]
  - Cerebral infarction [Unknown]
  - Transient ischaemic attack [Unknown]
  - Gastrointestinal disorder [Unknown]
  - Chronic obstructive pulmonary disease [Unknown]
  - Osteoarthritis [Unknown]
  - Drug ineffective [Unknown]
  - Abnormal behaviour [Unknown]
  - Lymphadenopathy mediastinal [Unknown]
  - Sinusitis [Unknown]
  - Cerebrovascular accident [Unknown]
  - Lung disorder [Unknown]
  - Pneumonia fungal [Recovering/Resolving]
  - Rectal polypectomy [Unknown]
  - Carotid artery stenosis [Unknown]
  - Rectal polyp [Unknown]
  - Spinal osteoarthritis [Unknown]
  - Breast cancer recurrent [Unknown]
  - Syncope [Unknown]
  - Tachycardia [Recovering/Resolving]
  - Syncope [Unknown]
  - Malignant breast lump removal [Unknown]
  - Hepatitis [Unknown]
  - Coccidioidomycosis [Unknown]
  - Radiotherapy [Unknown]
  - Mass [Unknown]
  - Asthma [Unknown]
  - Cerebral ischaemia [Unknown]
  - Blood cholesterol increased [Unknown]
  - Breast cancer [Unknown]
  - Diverticulum [Unknown]
  - Seizure [Unknown]
  - Cardiomegaly [Unknown]
  - Haemorrhoids [Unknown]
  - Coronary artery disease [Unknown]
  - Anaemia of chronic disease [Unknown]

NARRATIVE: CASE EVENT DATE: 2008
